FAERS Safety Report 5328040-9 (Version None)
Quarter: 2007Q2

REPORT INFORMATION
  Report Type: 
  Country: None (occurrence: None)
  Receive Date: 20070514
  Receipt Date: 20070501
  Transmission Date: 20071010
  Serious: Yes (Other)
  Sender: FDA-Public Use
  Company Number: US020030

PATIENT
  Age: 34 Year
  Sex: Female

DRUGS (1)
  1. FENTORA [Suspect]
     Dosage: 8000 UG 10 TABLETS ONCE BUCCAL
     Route: 002

REACTIONS (2)
  - LOSS OF CONSCIOUSNESS [None]
  - OVERDOSE [None]
